FAERS Safety Report 13224847 (Version 6)
Quarter: 2017Q2

REPORT INFORMATION
  Report Type: Spontaneous
  Country: US (occurrence: US)
  Receive Date: 20170213
  Receipt Date: 20170426
  Transmission Date: 20170830
  Serious: No
  Sender: FDA-Public Use
  Company Number: US-009507513-1701USA012582

PATIENT
  Age: 35 Year
  Sex: Female

DRUGS (13)
  1. METHOXSALEN. [Concomitant]
     Active Substance: METHOXSALEN
     Dosage: UNK
  2. NORCO [Concomitant]
     Active Substance: ACETAMINOPHEN\HYDROCODONE BITARTRATE
     Dosage: UNK
  3. INTRON A [Suspect]
     Active Substance: INTERFERON ALFA-2B
     Dosage: 5 MILLION IU, 3 TIMES WEEKLY
     Route: 058
     Dates: start: 20161220
  4. INTRON A [Suspect]
     Active Substance: INTERFERON ALFA-2B
     Dosage: 5 MILLION IU, 3 TIMES WEEKLY
     Route: 058
     Dates: start: 20161220
  5. CLOBETASOL PROPIONATE. [Concomitant]
     Active Substance: CLOBETASOL PROPIONATE
     Dosage: UNK
  6. PLAVIX [Concomitant]
     Active Substance: CLOPIDOGREL BISULFATE
     Dosage: UNK
  7. INTRON A [Suspect]
     Active Substance: INTERFERON ALFA-2B
     Dosage: 25 MILLION IU, UNK
     Dates: start: 20170328
  8. NORVASC [Concomitant]
     Active Substance: AMLODIPINE BESYLATE
     Dosage: UNK
  9. VISTARIL [Concomitant]
     Active Substance: HYDROXYZINE PAMOATE
     Dosage: UNK
  10. BENICAR [Concomitant]
     Active Substance: OLMESARTAN MEDOXOMIL
  11. ZOCOR [Concomitant]
     Active Substance: SIMVASTATIN
     Dosage: UNK
     Route: 048
  12. AUGMENTIN [Concomitant]
     Active Substance: AMOXICILLIN\CLAVULANATE POTASSIUM
     Dosage: UNK
  13. INTRON A [Suspect]
     Active Substance: INTERFERON ALFA-2B
     Indication: DIFFUSE LARGE B-CELL LYMPHOMA
     Dosage: 2 MILLION IU, 3 TIMES WEEKLY
     Route: 058
     Dates: start: 20161220, end: 20170124

REACTIONS (4)
  - Hypoaesthesia [Not Recovered/Not Resolved]
  - Drug dose omission [Unknown]
  - Paraesthesia [Not Recovered/Not Resolved]
  - Nasal congestion [Unknown]

NARRATIVE: CASE EVENT DATE: 20170124
